FAERS Safety Report 14450057 (Version 2)
Quarter: 2018Q1

REPORT INFORMATION
  Report Type: Report from Study
  Country: None (occurrence: BR)
  Receive Date: 20180129
  Receipt Date: 20180131
  Transmission Date: 20180509
  Serious: Yes (Disabling)
  Sender: FDA-Public Use
  Company Number: BR-ABBVIE-18K-020-2233276-00

PATIENT
  Age: 44 Year
  Sex: Female
  Weight: 65 kg

DRUGS (3)
  1. MESACOL MMX [Concomitant]
     Active Substance: MESALAMINE
  2. MESACOL MMX [Concomitant]
     Active Substance: MESALAMINE
     Indication: CROHN^S DISEASE
  3. HUMIRA [Suspect]
     Active Substance: ADALIMUMAB
     Indication: CROHN^S DISEASE
     Route: 058
     Dates: start: 20170816, end: 201712

REACTIONS (9)
  - Bladder pain [Unknown]
  - Cough [Recovering/Resolving]
  - Hypoaesthesia oral [Recovering/Resolving]
  - Pain in extremity [Unknown]
  - Ear pain [Recovering/Resolving]
  - Pulmonary pain [Unknown]
  - Pain [Unknown]
  - Monoplegia [Recovering/Resolving]
  - Headache [Recovering/Resolving]

NARRATIVE: CASE EVENT DATE: 201708
